FAERS Safety Report 23926065 (Version 1)
Quarter: 2024Q2

REPORT INFORMATION
  Report Type: Spontaneous
  Country: ID (occurrence: ID)
  Receive Date: 20240531
  Receipt Date: 20240531
  Transmission Date: 20240716
  Serious: Yes (Death, Hospitalization, Other)
  Sender: FDA-Public Use
  Company Number: ID-002147023-NVSC2024ID111175

PATIENT

DRUGS (1)
  1. RUXOLITINIB [Suspect]
     Active Substance: RUXOLITINIB
     Indication: Product used for unknown indication
     Dosage: UNK
     Route: 065

REACTIONS (8)
  - Anaemia [Fatal]
  - Dizziness [Fatal]
  - Pain in extremity [Fatal]
  - Asthenia [Fatal]
  - Sepsis [Fatal]
  - Disease progression [Fatal]
  - Thrombocytopenia [Fatal]
  - Drug ineffective [Fatal]
